FAERS Safety Report 13930962 (Version 3)
Quarter: 2017Q4

REPORT INFORMATION
  Report Type: Report from Study
  Country: JP (occurrence: JP)
  Receive Date: 20170902
  Receipt Date: 20171202
  Transmission Date: 20180320
  Serious: Yes (Death)
  Sender: FDA-Public Use
  Company Number: JP-AMGEN-JPNCT2017133145

PATIENT
  Age: 75 Year
  Sex: Male
  Weight: 56 kg

DRUGS (7)
  1. CARVEDILOL. [Concomitant]
     Active Substance: CARVEDILOL
     Dosage: 10 MG, UNK
     Route: 048
     Dates: start: 20160315
  2. FILGRASTIM [Concomitant]
     Active Substance: FILGRASTIM
     Indication: MYELODYSPLASTIC SYNDROME
     Dosage: 75 MUG, UNK
     Route: 065
     Dates: start: 20160302
  3. CELECOX [Concomitant]
     Active Substance: CELECOXIB
     Indication: MYELODYSPLASTIC SYNDROME
     Dosage: 400 MG, UNK
     Route: 048
     Dates: start: 20160307
  4. DARBEPOETIN ALFA [Suspect]
     Active Substance: DARBEPOETIN ALFA
     Indication: MYELODYSPLASTIC SYNDROME
     Dosage: 240 MUG, QWK
     Route: 058
     Dates: start: 20160309, end: 20160322
  5. NOVORAPID [Concomitant]
     Active Substance: INSULIN ASPART
     Dosage: 28 IU, UNK
     Route: 065
     Dates: start: 20160318
  6. SENNOSIDE [Concomitant]
     Active Substance: SENNOSIDES
     Dosage: 24 MG, UNK
     Route: 048
     Dates: start: 20160307
  7. DAIPHEN [Concomitant]
     Active Substance: SULFAMETHOXAZOLE\TRIMETHOPRIM
     Dosage: 1 DF, UNK
     Route: 048
     Dates: start: 20160311

REACTIONS (2)
  - Acute myeloid leukaemia [Fatal]
  - Pruritus [Recovered/Resolved]

NARRATIVE: CASE EVENT DATE: 20160322
